FAERS Safety Report 7520014-2 (Version None)
Quarter: 2011Q2

REPORT INFORMATION
  Report Type: 
  Country: None (occurrence: None)
  Receive Date: 20110602
  Receipt Date: 20110520
  Transmission Date: 20111010
  Serious: Yes (Hospitalization)
  Sender: FDA-Public Use
  Company Number: PHHY2010CA65034

PATIENT
  Sex: Male

DRUGS (1)
  1. EXJADE [Suspect]
     Indication: THALASSAEMIA
     Dosage: 3 TABLETS
     Route: 048
     Dates: start: 20100801

REACTIONS (3)
  - INFECTION [None]
  - PALLOR [None]
  - DIZZINESS [None]
